FAERS Safety Report 8583275 (Version 3)
Quarter: 2013Q1

REPORT INFORMATION
  Report Type: Spontaneous
  Country: GB (occurrence: GB)
  Receive Date: 20120529
  Receipt Date: 20130110
  Transmission Date: 20140127
  Serious: Yes (Other)
  Sender: FDA-Public Use
  Company Number: GB-ELI_LILLY_AND_COMPANY-GB201205005482

PATIENT
  Sex: Male
  Weight: 19.2 kg

DRUGS (3)
  1. STRATTERA [Suspect]
     Indication: ATTENTION DEFICIT/HYPERACTIVITY DISORDER
     Dosage: 1 DF, UNK
     Dates: start: 201102
  2. STRATTERA [Suspect]
     Dosage: 35 MG, QD
     Dates: start: 20110307
  3. STRATTERA [Suspect]
     Dosage: UNK

REACTIONS (1)
  - Muscle spasms [Recovered/Resolved]
